FAERS Safety Report 9885758 (Version 1)
Quarter: 2014Q1

REPORT INFORMATION
  Report Type: Spontaneous
  Country: NL (occurrence: NL)
  Receive Date: 20140210
  Receipt Date: 20140210
  Transmission Date: 20141002
  Serious: Yes (Hospitalization)
  Sender: FDA-Public Use
  Company Number: NL-TEVA-459538ISR

PATIENT
  Age: 46 Year
  Sex: Male

DRUGS (1)
  1. HYDROCHLOORTHIAZIDE TABLET 12,5MG [Suspect]
     Indication: HYPERTENSION
     Dosage: 12.5 MILLIGRAM DAILY;
     Route: 048
     Dates: start: 20130219

REACTIONS (2)
  - Urinary hesitation [Not Recovered/Not Resolved]
  - Dysuria [Not Recovered/Not Resolved]
